FAERS Safety Report 9932945 (Version 1)
Quarter: 2014Q1

REPORT INFORMATION
  Report Type: Spontaneous
  Country: US (occurrence: US)
  Receive Date: 20140228
  Receipt Date: 20140228
  Transmission Date: 20141002
  Serious: No
  Sender: FDA-Public Use
  Company Number: US-ABBVIE-13P-163-1064540-00

PATIENT
  Sex: Male

DRUGS (2)
  1. ANDROGEL [Suspect]
     Indication: BLOOD TESTOSTERONE DECREASED
  2. ANDROGEL [Suspect]

REACTIONS (3)
  - Somnolence [Not Recovered/Not Resolved]
  - Blood testosterone free increased [Unknown]
  - Weight increased [Not Recovered/Not Resolved]
